FAERS Safety Report 6524154-6 (Version None)
Quarter: 2009Q4

REPORT INFORMATION
  Report Type: 
  Country: None (occurrence: None)
  Receive Date: 20091231
  Receipt Date: 20091218
  Transmission Date: 20100525
  Serious: Yes (Other)
  Sender: FDA-Public Use
  Company Number: GB-TYCO HEALTHCARE/MALLINCKRODT-T200902338

PATIENT
  Age: 73 Year

DRUGS (16)
  1. OXYCODONE [Suspect]
     Dosage: UNK
  2. CODEINE W/PARACETAMOL [Suspect]
     Dosage: GREATER THAN 8 TABS PER DAY
  3. CODEINE [Suspect]
     Dosage: UNK
  4. DEXTROPROPOXYPHENE [Suspect]
     Dosage: UNK
  5. CALCITRIOL [Concomitant]
     Dosage: UNK
  6. FUROSEMIDE [Concomitant]
     Dosage: UNK
  7. METOPROLOL TARTRATE [Concomitant]
     Dosage: UNK
  8. DOTHIEPIN                          /00160401/ [Concomitant]
     Dosage: UNK
  9. RAMIPRIL [Concomitant]
     Dosage: UNK
  10. CELECOXIB [Concomitant]
     Dosage: UNK
  11. ALLOPURINOL [Concomitant]
     Dosage: UNK
  12. ACETAZOLAMIDE [Concomitant]
     Dosage: UNK
  13. SODIUM BICARBONATE [Concomitant]
     Dosage: UNK
  14. ASPIRIN [Concomitant]
     Dosage: UNK
  15. PREDNISOLONE [Concomitant]
     Dosage: UNK
  16. FLUNITRAZEPAM [Concomitant]
     Dosage: UNK

REACTIONS (6)
  - ALANINE AMINOTRANSFERASE INCREASED [None]
  - BLOOD ALKALINE PHOSPHATASE INCREASED [None]
  - DEAFNESS NEUROSENSORY [None]
  - GAMMA-GLUTAMYLTRANSFERASE INCREASED [None]
  - MACROCYTOSIS [None]
  - TINNITUS [None]
